FAERS Safety Report 15883153 (Version 1)
Quarter: 2019Q1

REPORT INFORMATION
  Report Type: Spontaneous
  Country: US (occurrence: US)
  Receive Date: 20190107
  Receipt Date: 20190107
  Transmission Date: 20190417
  Serious: No
  Sender: FDA-Public Use
  Company Number: None

PATIENT
  Age: 65 Year
  Sex: Female
  Weight: 119.29 kg

DRUGS (1)
  1. OLUMIANT [Suspect]
     Active Substance: BARICITINIB
     Indication: RHEUMATOID ARTHRITIS
     Dosage: ?          OTHER DOSE:TAKE 1 TABLET;?
     Route: 048
     Dates: start: 201812

REACTIONS (8)
  - Ulcer haemorrhage [None]
  - C-reactive protein increased [None]
  - Abdominal pain [None]
  - Alanine aminotransferase increased [None]
  - Mean cell volume decreased [None]
  - Abdominal discomfort [None]
  - Red blood cell sedimentation rate increased [None]
  - Blood creatine increased [None]
